FAERS Safety Report 8924620 (Version 1)
Quarter: 2012Q4

REPORT INFORMATION
  Report Type: 
  Country: US (occurrence: US)
  Receive Date: 20121126
  Receipt Date: 20121126
  Transmission Date: 20130627
  Serious: No
  Sender: FDA-Public Use
  Company Number: US-BRISTOL-MYERS SQUIBB COMPANY-16917510

PATIENT
  Age: 67 Year
  Sex: Male
  Weight: 99.32 kg

DRUGS (2)
  1. KOMBIGLYZE XR [Suspect]
     Indication: TYPE 2 DIABETES MELLITUS
     Dosage: 1DF = 5mg/500mg Tabs
     Route: 048
     Dates: start: 20120828
  2. METFORMIN [Suspect]

REACTIONS (1)
  - Insomnia [Unknown]
